FAERS Safety Report 13130840 (Version 1)
Quarter: 2017Q1

REPORT INFORMATION
  Report Type: Spontaneous
  Country: US (occurrence: US)
  Receive Date: 20170118
  Receipt Date: 20170118
  Transmission Date: 20170428
  Serious: No
  Sender: FDA-Public Use
  Company Number: None

PATIENT
  Sex: Female

DRUGS (1)
  1. RIBAVIRIN 200MG CADILA [Suspect]
     Active Substance: RIBAVIRIN
     Indication: CHRONIC HEPATITIS C
     Dosage: 400MG AM AND 600MG PM
     Route: 048
     Dates: start: 201612

REACTIONS (5)
  - Insomnia [None]
  - Emotional disorder [None]
  - Asthenia [None]
  - Amnesia [None]
  - Fatigue [None]
